FAERS Safety Report 9873794 (Version 2)
Quarter: 2014Q1

REPORT INFORMATION
  Report Type: Spontaneous
  Country: US (occurrence: US)
  Receive Date: 20140206
  Receipt Date: 20140206
  Transmission Date: 20141002
  Serious: No
  Sender: FDA-Public Use
  Company Number: US-ACORDA-ACO_33797_2013

PATIENT
  Age: 66 Year
  Sex: Female
  Weight: 71.2 kg

DRUGS (3)
  1. AMPYRA [Suspect]
     Indication: MULTIPLE SCLEROSIS
     Dosage: 10 MG, BID
     Route: 048
     Dates: start: 201211
  2. OTHER THERAPEUTIC PRODUCTS [Concomitant]
     Indication: MULTIPLE SCLEROSIS
  3. OTHER THERAPEUTIC PRODUCTS [Concomitant]
     Indication: BLOOD CHOLESTEROL

REACTIONS (3)
  - Gait disturbance [Unknown]
  - Balance disorder [Unknown]
  - Inappropriate schedule of drug administration [Unknown]
